FAERS Safety Report 6591560-3 (Version None)
Quarter: 2010Q1

REPORT INFORMATION
  Report Type: 
  Country: None (occurrence: None)
  Receive Date: 20100221
  Receipt Date: 20100216
  Transmission Date: 20100710
  Serious: Yes (Hospitalization, Disabling, Other)
  Sender: FDA-Public Use
  Company Number: US-MERCK-0810USA03092

PATIENT
  Age: 80 Year
  Sex: Female
  Weight: 66 kg

DRUGS (5)
  1. FOSAMAX [Suspect]
     Indication: OSTEOPOROSIS
     Route: 048
     Dates: start: 20000601, end: 20060801
  2. FOSAMAX [Suspect]
     Route: 048
     Dates: start: 20000601
  3. FOSAMAX [Suspect]
     Route: 048
     Dates: start: 20030901, end: 20060801
  4. FOSAMAX [Suspect]
     Route: 048
     Dates: start: 20030901, end: 20060801
  5. [THERAPY UNSPECIFIED] [Concomitant]
     Indication: BLOOD PRESSURE
     Route: 065
     Dates: start: 19880101

REACTIONS (31)
  - ADHESION [None]
  - BALANCE DISORDER [None]
  - BRONCHITIS [None]
  - CARDIOMEGALY [None]
  - CATARACT [None]
  - CONTUSION [None]
  - DEAFNESS NEUROSENSORY [None]
  - DEPRESSION [None]
  - DYSPHONIA [None]
  - HEPATIC CYST [None]
  - HEPATIC STEATOSIS [None]
  - HERPES ZOSTER [None]
  - HIATUS HERNIA [None]
  - HYPERGLYCAEMIA [None]
  - INTERVERTEBRAL DISC DEGENERATION [None]
  - JOINT SPRAIN [None]
  - MOUTH ULCERATION [None]
  - ORAL DISORDER [None]
  - ORAL TORUS [None]
  - OSTEONECROSIS [None]
  - OVERDOSE [None]
  - PARANASAL SINUS HYPERSECRETION [None]
  - POSTMENOPAUSAL HAEMORRHAGE [None]
  - RENAL CYST [None]
  - RENAL FAILURE [None]
  - RHINITIS ALLERGIC [None]
  - STOMATITIS [None]
  - TRAUMATIC BRAIN INJURY [None]
  - UTERINE POLYP [None]
  - VERTIGO [None]
  - WOUND [None]
